FAERS Safety Report 8408052-9 (Version None)
Quarter: 2012Q2

REPORT INFORMATION
  Report Type: 
  Country: None (occurrence: None)
  Receive Date: 20120604
  Receipt Date: 20120529
  Transmission Date: 20120825
  Serious: No
  Sender: FDA-Public Use
  Company Number: US-MERCK-1204USA00059

PATIENT
  Age: 58 Year
  Sex: Male
  Weight: 89 kg

DRUGS (6)
  1. FOSAPREPITANT DIMEGLUMINE [Suspect]
     Indication: PROPHYLAXIS OF NAUSEA AND VOMITING
     Route: 041
     Dates: start: 20120329, end: 20120329
  2. CISPLATIN [Concomitant]
     Indication: CHEMOTHERAPY
     Route: 042
     Dates: start: 20120329
  3. CISPLATIN [Concomitant]
     Route: 042
     Dates: start: 20120329
  4. MANNITOL [Concomitant]
     Indication: DIZZINESS
     Route: 042
     Dates: start: 20120329
  5. ALOXI [Concomitant]
     Indication: NAUSEA
     Route: 042
     Dates: start: 20120329
  6. DECADRON [Concomitant]
     Indication: NAUSEA
     Route: 042
     Dates: start: 20120329

REACTIONS (4)
  - DYSPNOEA [None]
  - ERYTHEMA [None]
  - THROAT TIGHTNESS [None]
  - DRUG HYPERSENSITIVITY [None]
